FAERS Safety Report 6624099-7 (Version None)
Quarter: 2010Q1

REPORT INFORMATION
  Report Type: 
  Country: None (occurrence: None)
  Receive Date: 20100310
  Receipt Date: 20100302
  Transmission Date: 20100710
  Serious: Yes (Hospitalization, Other)
  Sender: FDA-Public Use
  Company Number: JP-PFIZER INC-2010021084

PATIENT
  Age: 56 Year
  Sex: Female
  Weight: 48 kg

DRUGS (9)
  1. HYSRON-H [Suspect]
     Indication: BREAST CANCER
     Dosage: 400 MG, 2X/DAY
     Route: 048
     Dates: start: 20090605, end: 20100113
  2. ENDOXAN [Suspect]
     Indication: BREAST CANCER
     Dosage: 50 MG, 2X/DAY
     Route: 048
     Dates: start: 20090605, end: 20100113
  3. FURTULON [Suspect]
     Indication: BREAST CANCER
     Dosage: 200 MG, 3X/DAY
     Route: 048
     Dates: start: 20090605, end: 20100113
  4. GASTER [Concomitant]
     Dosage: UNK
     Route: 048
     Dates: start: 20080606
  5. FERROMIA [Concomitant]
     Dosage: UNK
     Route: 048
     Dates: start: 20080606, end: 20100113
  6. LOXONIN [Concomitant]
     Dosage: UNK
     Route: 048
     Dates: start: 20080606
  7. AMOBAN [Concomitant]
     Dosage: UNK
     Route: 048
     Dates: start: 20081015
  8. PURSENNID [Concomitant]
     Dosage: UNK
     Route: 048
     Dates: start: 20080606
  9. ZOMETA [Concomitant]
     Dosage: UNK
     Route: 042
     Dates: start: 20080709

REACTIONS (2)
  - HEPATIC FUNCTION ABNORMAL [None]
  - LIVER DISORDER [None]
